FAERS Safety Report 5012030-X (Version None)
Quarter: 2006Q2

REPORT INFORMATION
  Report Type: 
  Country: None (occurrence: None)
  Receive Date: 20060526
  Receipt Date: 20060424
  Transmission Date: 20061013
  Serious: Yes (Disabling)
  Sender: FDA-Public Use
  Company Number: US-GLAXOSMITHKLINE-A0603025A

PATIENT
  Age: 53 Year
  Sex: Female
  Weight: 105.7 kg

DRUGS (4)
  1. AVANDIA [Suspect]
     Dosage: 2MG TWICE PER DAY
     Route: 048
     Dates: start: 20050901
  2. GLUCOTROL [Concomitant]
  3. GLUCOPHAGE [Concomitant]
  4. MONOPRIL [Concomitant]

REACTIONS (2)
  - JOINT SWELLING [None]
  - MYALGIA [None]
